FAERS Safety Report 5286956-6 (Version None)
Quarter: 2007Q2

REPORT INFORMATION
  Report Type: 
  Country: None (occurrence: None)
  Receive Date: 20070404
  Receipt Date: 20070330
  Transmission Date: 20071010
  Serious: Yes (Other)
  Sender: FDA-Public Use
  Company Number: GB-ABBOTT-07P-167-0363561-00

PATIENT
  Age: 41 Year
  Sex: Female

DRUGS (2)
  1. RITONAVIR SOFT GELATIN CAPSULES [Suspect]
     Indication: DRUG USE FOR UNKNOWN INDICATION
  2. VIREAD [Suspect]
     Indication: DRUG USE FOR UNKNOWN INDICATION
     Dates: start: 20010101

REACTIONS (2)
  - PAIN [None]
  - SPINAL COMPRESSION FRACTURE [None]
